FAERS Safety Report 9503324 (Version 6)
Quarter: 2013Q4

REPORT INFORMATION
  Report Type: Report from Study
  Country: DE (occurrence: DE)
  Receive Date: 20130906
  Receipt Date: 20131218
  Transmission Date: 20140711
  Serious: Yes (Hospitalization, Other)
  Sender: FDA-Public Use
  Company Number: DE-JNJFOC-20130812613

PATIENT
  Age: 33 Year
  Sex: Female
  Weight: 56 kg

DRUGS (5)
  1. REMICADE [Suspect]
     Indication: CROHN^S DISEASE
     Route: 042
     Dates: start: 20130621, end: 20130729
  2. REMICADE [Suspect]
     Indication: CROHN^S DISEASE
     Route: 042
     Dates: start: 20130227
  3. REMICADE [Suspect]
     Indication: CROHN^S DISEASE
     Route: 042
     Dates: start: 20130412
  4. ISOZID [Concomitant]
     Indication: LATENT TUBERCULOSIS
     Route: 065
     Dates: start: 20130212
  5. FLUOXETINE [Concomitant]
     Indication: DEPRESSION
     Route: 065
     Dates: start: 201301

REACTIONS (4)
  - Arthropathy [Not Recovered/Not Resolved]
  - Incisional hernia [Recovered/Resolved]
  - Alopecia [Recovered/Resolved]
  - Tonsillitis [Recovered/Resolved]
